FAERS Safety Report 9782331 (Version 2)
Quarter: 2014Q1

REPORT INFORMATION
  Report Type: Spontaneous
  Country: IT (occurrence: IT)
  Receive Date: 20131226
  Receipt Date: 20140210
  Transmission Date: 20141002
  Serious: Yes (Death, Hospitalization)
  Sender: FDA-Public Use
  Company Number: IT-TEVA-451012ISR

PATIENT
  Age: 74 Year
  Sex: Male
  Weight: 60 kg

DRUGS (7)
  1. FLUOROURACILE TEVA [Suspect]
     Indication: PANCREATIC CARCINOMA
     Dosage: 2500 MILLIGRAM DAILY;
     Route: 042
     Dates: start: 20131112, end: 20131119
  2. CALCIO LEVOFOLINATO TEVA [Suspect]
     Indication: PANCREATIC CARCINOMA
     Dosage: 312 MILLIGRAM DAILY; POWDER FOR SOLUTION FOR INFUSION
     Route: 042
     Dates: start: 20131112, end: 20131119
  3. CAMPTO [Suspect]
     Indication: PANCREATIC CARCINOMA
     Dosage: 100 MILLIGRAM DAILY; CONCENTRATE FOR SOLUTION FOR INFUSION
     Route: 042
     Dates: start: 20131112, end: 20131119
  4. ATROPINA SOLFATO [Concomitant]
     Indication: PROPHYLAXIS AGAINST DIARRHOEA
     Dosage: .25 MILLIGRAM DAILY;
     Route: 058
     Dates: start: 20131112, end: 20131119
  5. IRBESARTAN [Concomitant]
     Indication: HYPERTENSION
     Dosage: 300 MILLIGRAM DAILY;
     Route: 048
     Dates: start: 20130402, end: 20131130
  6. ZOFRAN [Concomitant]
     Indication: PROPHYLAXIS OF NAUSEA AND VOMITING
     Dosage: 8 MILLIGRAM DAILY;
     Route: 042
     Dates: start: 20131112, end: 20131119
  7. HUMALOG 100U/L [Concomitant]
     Indication: DIABETES MELLITUS
     Dosage: 9 DOSAGE FORMS DAILY;
     Route: 058
     Dates: start: 20130402, end: 20131130

REACTIONS (5)
  - Febrile neutropenia [Fatal]
  - Hyperpyrexia [Fatal]
  - Sepsis [Fatal]
  - Apathy [Unknown]
  - Sopor [Unknown]
